FAERS Safety Report 9203497 (Version 2)
Quarter: 2013Q2

REPORT INFORMATION
  Report Type: Spontaneous
  Country: IT (occurrence: None)
  Receive Date: 20130328
  Receipt Date: 20130415
  Transmission Date: 20140414
  Serious: Yes (Hospitalization, Other)
  Sender: FDA-Public Use
  Company Number: AUR-APL-2013-02106

PATIENT
  Sex: Male
  Weight: 3.86 kg

DRUGS (1)
  1. CITALOPRAM [Suspect]
     Dosage: 20MG (20 MG, 1 IN 1 D)
     Route: 064

REACTIONS (8)
  - Hypertonia neonatal [None]
  - Toxicity to various agents [None]
  - Drug withdrawal syndrome neonatal [None]
  - Muscle rigidity [None]
  - Feeling jittery [None]
  - Blood creatine phosphokinase increased [None]
  - Maternal drugs affecting foetus [None]
  - Tremor neonatal [None]
